FAERS Safety Report 22393680 (Version 7)
Quarter: 2025Q2

REPORT INFORMATION
  Report Type: Spontaneous
  Country: IN (occurrence: IN)
  Receive Date: 20230601
  Receipt Date: 20250627
  Transmission Date: 20250716
  Serious: Yes (Other)
  Sender: PFIZER
  Company Number: IN-PFIZER INC-PV202300030914

PATIENT
  Age: 67 Year
  Sex: Female

DRUGS (11)
  1. PALBOCICLIB [Suspect]
     Active Substance: PALBOCICLIB
     Indication: Breast cancer metastatic
     Route: 048
  2. PALBOCICLIB [Suspect]
     Active Substance: PALBOCICLIB
     Route: 048
  3. LETROZOLE [Concomitant]
     Active Substance: LETROZOLE
  4. CEFOR [CEFPIROME SULFATE] [Concomitant]
  5. FOLVITE [Concomitant]
     Active Substance: FOLIC ACID
  6. OROFER XT [Concomitant]
  7. DENOCI [Concomitant]
     Route: 058
  8. BRACE [Concomitant]
  9. CALATE [CALCIUM CARBONATE;COLECALCIFEROL] [Concomitant]
  10. CALCIUM [Concomitant]
     Active Substance: CALCIUM
  11. NECLORAL [Concomitant]
     Dosage: UNK, 1X/DAY

REACTIONS (6)
  - Haemoglobin decreased [Unknown]
  - Platelet count decreased [Unknown]
  - White blood cell count decreased [Unknown]
  - Gastroenteritis [Unknown]
  - Performance status decreased [Recovering/Resolving]
  - Blood creatinine increased [Unknown]

NARRATIVE: CASE EVENT DATE: 20230125
